FAERS Safety Report 11362243 (Version 1)
Quarter: 2015Q3

REPORT INFORMATION
  Report Type: Spontaneous
  Country: GB (occurrence: GB)
  Receive Date: 20150810
  Receipt Date: 20150810
  Transmission Date: 20151125
  Serious: Yes (Life-Threatening)
  Sender: FDA-Public Use
  Company Number: GB-ASTRAZENECA-2015SE76050

PATIENT
  Age: 73 Year
  Sex: Male

DRUGS (3)
  1. CARBAMAZEPINE. [Concomitant]
     Active Substance: CARBAMAZEPINE
     Indication: BIPOLAR DISORDER
     Route: 048
  2. QUETIAPINE [Suspect]
     Active Substance: QUETIAPINE
     Indication: BIPOLAR DISORDER
     Route: 048
     Dates: start: 20150714, end: 20150716
  3. SIMVASTATIN. [Concomitant]
     Active Substance: SIMVASTATIN
     Indication: BLOOD CHOLESTEROL INCREASED
     Route: 048
     Dates: end: 20150715

REACTIONS (6)
  - Delirium [Recovering/Resolving]
  - Muscle rigidity [Recovering/Resolving]
  - Neuroleptic malignant syndrome [Recovering/Resolving]
  - Blood creatine phosphokinase increased [Recovering/Resolving]
  - Confusional state [Recovering/Resolving]
  - Incontinence [Recovering/Resolving]

NARRATIVE: CASE EVENT DATE: 20150714
